FAERS Safety Report 7108152-X (Version None)
Quarter: 2010Q4

REPORT INFORMATION
  Report Type: 
  Country: None (occurrence: None)
  Receive Date: 20101115
  Receipt Date: 20101115
  Transmission Date: 20110411
  Serious: No
  Sender: FDA-Public Use
  Company Number: None

PATIENT
  Age: 64 Year
  Sex: Female
  Weight: 77.1115 kg

DRUGS (1)
  1. RECLAST [Suspect]
     Indication: OSTEOPOROSIS
     Dosage: ONCE A YEAR
     Route: 042
     Dates: start: 20100617

REACTIONS (7)
  - ARTHRALGIA [None]
  - BONE PAIN [None]
  - CHILLS [None]
  - HEADACHE [None]
  - INSOMNIA [None]
  - MYALGIA [None]
  - PYREXIA [None]
